FAERS Safety Report 20562366 (Version 2)
Quarter: 2022Q1

REPORT INFORMATION
  Report Type: Spontaneous
  Country: US (occurrence: US)
  Receive Date: 20220307
  Receipt Date: 20220311
  Transmission Date: 20220423
  Serious: Yes (Other)
  Sender: FDA-Public Use
  Company Number: US-BRISTOL-MYERS SQUIBB COMPANY-BMS-2022-034469

PATIENT
  Age: 61 Year
  Sex: Male
  Weight: 103.87 kg

DRUGS (2)
  1. OPDIVO [Suspect]
     Active Substance: NIVOLUMAB
     Indication: Soft tissue sarcoma
     Dosage: 240 MILLIGRAM, Q2WK
     Route: 042
  2. YERVOY [Suspect]
     Active Substance: IPILIMUMAB
     Indication: Soft tissue sarcoma
     Dosage: 321 MILLIGRAM, Q2WK
     Route: 042

REACTIONS (3)
  - Therapy non-responder [Unknown]
  - Product supply issue [Unknown]
  - Intentional product use issue [Unknown]

NARRATIVE: CASE EVENT DATE: 20220304
